FAERS Safety Report 7773385-6 (Version None)
Quarter: 2011Q3

REPORT INFORMATION
  Report Type: 
  Country: None (occurrence: None)
  Receive Date: 20110922
  Receipt Date: 20110916
  Transmission Date: 20111222
  Serious: Yes (Life-Threatening)
  Sender: FDA-Public Use
  Company Number: GB-GENENTECH-324494

PATIENT
  Age: 81 Year
  Sex: Male
  Weight: 62 kg

DRUGS (5)
  1. MABTHERA [Suspect]
     Indication: PRODUCT USED FOR UNKNOWN INDICATION
     Dosage: 600 MG, UNK
     Route: 042
     Dates: start: 20110511, end: 20110511
  2. ALLOPURINOL [Concomitant]
     Indication: GOUT
     Dosage: 300 MG, QAM
     Route: 048
     Dates: start: 20110509
  3. BISOPROLOL FUMARATE [Concomitant]
     Indication: LEFT VENTRICULAR DYSFUNCTION
     Dosage: 2.5 MG, QAM
     Route: 048
     Dates: start: 20110509
  4. MABTHERA [Suspect]
     Dosage: 600 MG, UNK
     Route: 042
     Dates: start: 20110620, end: 20110620
  5. FOLIC ACID [Concomitant]
     Indication: FOLATE DEFICIENCY
     Dosage: 5 MG, QAM
     Route: 048
     Dates: start: 20110510

REACTIONS (1)
  - ACUTE MYOCARDIAL INFARCTION [None]
